FAERS Safety Report 4657013-4 (Version None)
Quarter: 2005Q2

REPORT INFORMATION
  Report Type: 
  Country: None (occurrence: None)
  Receive Date: 20050506
  Receipt Date: 20050428
  Transmission Date: 20051028
  Serious: Yes (Hospitalization)
  Sender: FDA-Public Use
  Company Number: 2005067403

PATIENT
  Sex: Male
  Weight: 59.8748 kg

DRUGS (10)
  1. BEXTRA [Suspect]
     Indication: PAIN
     Dosage: 10 MG (10 MG, 1 IN 1 D), ORAL
     Route: 048
     Dates: start: 20040601, end: 20050101
  2. ALBUTEROL + IPRATROPIUM SOLUTION) (IPRATROPIUM BROMIDE, SALBUTAMOL SUL [Concomitant]
  3. ADVAIR (FLUTICASONE PROPIONATE, SALMETEROL XINAFOATE) [Concomitant]
  4. BECONASE NASAL SPRAY (BECLOMETASONE DIPROPIONATE) [Concomitant]
  5. SYNTHROID [Concomitant]
  6. MONOPRIL [Concomitant]
  7. ACTONEL [Concomitant]
  8. IBUPROFEN [Concomitant]
  9. GLUCOSAMINE (GLUCOSAMINE) [Concomitant]
  10. OCUVITE (ASCORBIC ACID, RETINOL, TOCOPHEROL) [Concomitant]

REACTIONS (5)
  - DRUG DOSE OMISSION [None]
  - DRUG EFFECT DECREASED [None]
  - DYSPHONIA [None]
  - EAR OPERATION [None]
  - MALIGNANT MELANOMA [None]
